FAERS Safety Report 13666967 (Version 1)
Quarter: 2017Q2

REPORT INFORMATION
  Report Type: Spontaneous
  Country: US (occurrence: US)
  Receive Date: 20170619
  Receipt Date: 20170619
  Transmission Date: 20170830
  Serious: No
  Sender: FDA-Public Use
  Company Number: US-ROCHE-1290869

PATIENT
  Sex: Female

DRUGS (5)
  1. CARVEDILOL. [Concomitant]
     Active Substance: CARVEDILOL
     Route: 065
  2. NEXIUM [Concomitant]
     Active Substance: ESOMEPRAZOLE MAGNESIUM
  3. TYLENOL [Concomitant]
     Active Substance: ACETAMINOPHEN
  4. XELODA [Suspect]
     Active Substance: CAPECITABINE
     Indication: BREAST CANCER
     Dosage: 3 WEEKS ON 1 WEEK OFF
     Route: 048
     Dates: start: 20130827
  5. TYKERB [Concomitant]
     Active Substance: LAPATINIB DITOSYLATE

REACTIONS (1)
  - Diarrhoea [Not Recovered/Not Resolved]
